FAERS Safety Report 8220606-1 (Version None)
Quarter: 2012Q1

REPORT INFORMATION
  Report Type: 
  Country: None (occurrence: None)
  Receive Date: 20120320
  Receipt Date: 20120314
  Transmission Date: 20120608
  Serious: Yes (Hospitalization)
  Sender: FDA-Public Use
  Company Number: US-AMGEN-USASP2012015486

PATIENT
  Age: 79 Year
  Sex: Female

DRUGS (3)
  1. DOXORUBICIN HCL [Concomitant]
     Indication: BREAST CANCER
     Dosage: 114 MG, UNK
     Route: 042
     Dates: start: 20120215
  2. NEULASTA [Suspect]
     Indication: BREAST CANCER
     Dosage: 6 MG, AFTER CHEMO
     Route: 058
     Dates: start: 20120216
  3. CYCLOPHOSPHAMIDE [Concomitant]
     Indication: BREAST CANCER
     Dosage: 1140 MG, Q2WK
     Route: 042
     Dates: start: 20120215

REACTIONS (1)
  - FEBRILE NEUTROPENIA [None]
